FAERS Safety Report 5272739-X (Version None)
Quarter: 2007Q1

REPORT INFORMATION
  Report Type: 
  Country: None (occurrence: None)
  Receive Date: 20070322
  Receipt Date: 20070319
  Transmission Date: 20070707
  Serious: Yes (Other)
  Sender: FDA-Public Use
  Company Number: US-GLAXOSMITHKLINE-A0639586A

PATIENT
  Age: 9 Week
  Sex: Male
  Weight: 4.8 kg

DRUGS (4)
  1. ZANTAC [Suspect]
     Route: 048
     Dates: start: 20061202, end: 20070209
  2. PRILOSEC [Suspect]
     Indication: DRUG USE FOR UNKNOWN INDICATION
     Dosage: 10MG SINGLE DOSE
     Dates: start: 20061210, end: 20061210
  3. ACIDOPHILUS [Concomitant]
     Dates: start: 20070214
  4. BIFIDUS [Concomitant]
     Dates: start: 20070214

REACTIONS (18)
  - ABDOMINAL DISCOMFORT [None]
  - ALANINE AMINOTRANSFERASE INCREASED [None]
  - ASPARTATE AMINOTRANSFERASE INCREASED [None]
  - BACTERIA STOOL IDENTIFIED [None]
  - DIARRHOEA [None]
  - DISCOMFORT [None]
  - ERUCTATION [None]
  - FAECES DISCOLOURED [None]
  - FREQUENT BOWEL MOVEMENTS [None]
  - HAEMATOCHEZIA [None]
  - MEDICATION ERROR [None]
  - MUCOUS STOOLS [None]
  - OVERDOSE [None]
  - POLLAKIURIA [None]
  - PYREXIA [None]
  - STOMACH DISCOMFORT [None]
  - THIRST [None]
  - THROAT IRRITATION [None]
